FAERS Safety Report 5923605-5 (Version None)
Quarter: 2008Q4

REPORT INFORMATION
  Report Type: 
  Country: None (occurrence: None)
  Receive Date: 20081015
  Receipt Date: 20080929
  Transmission Date: 20090506
  Serious: Yes (Hospitalization)
  Sender: FDA-Public Use
  Company Number: US-GDP-08404654

PATIENT
  Sex: Female

DRUGS (4)
  1. ORACEA [Suspect]
     Indication: ROSACEA
     Dosage: (40 MG QD ORAL)
     Route: 048
     Dates: start: 20080401, end: 20080426
  2. METROGEL [Concomitant]
  3. AZELAIC ACID [Concomitant]
  4. ESCITALOPRAM [Concomitant]

REACTIONS (2)
  - BENIGN INTRACRANIAL HYPERTENSION [None]
  - VIRAL INFECTION [None]
